FAERS Safety Report 23722978 (Version 1)
Quarter: 2024Q2

REPORT INFORMATION
  Report Type: Spontaneous
  Country: US (occurrence: None)
  Receive Date: 20240408
  Receipt Date: 20240408
  Transmission Date: 20240715
  Serious: No
  Sender: FDA-Public Use
  Company Number: None

PATIENT
  Age: 70 Year
  Sex: Male

DRUGS (1)
  1. REPATHA [Suspect]
     Active Substance: EVOLOCUMAB
     Indication: Hypercholesterolaemia
     Dates: end: 20240318

REACTIONS (3)
  - Diarrhoea [None]
  - Pyrexia [None]
  - Swelling [None]

NARRATIVE: CASE EVENT DATE: 20240318
